FAERS Safety Report 14256425 (Version 1)
Quarter: 2017Q4

REPORT INFORMATION
  Report Type: Spontaneous
  Country: CN (occurrence: CN)
  Receive Date: 20171206
  Receipt Date: 20171206
  Transmission Date: 20180321
  Serious: Yes (Other)
  Sender: FDA-Public Use
  Company Number: CN-BAYER-2017-232024

PATIENT
  Age: 76 Year
  Sex: Female
  Weight: 51 kg

DRUGS (3)
  1. BAYASPIRIN 100 MG [Suspect]
     Active Substance: ASPIRIN
     Indication: COAGULOPATHY
     Dosage: 1 MG, QD
     Route: 048
     Dates: start: 20170718, end: 20170725
  2. ALPROSTADIL. [Suspect]
     Active Substance: ALPROSTADIL
     Indication: RETINAL VASCULAR DISORDER
     Dosage: 10 ?G, QD
     Route: 041
     Dates: start: 20170718, end: 20170726
  3. PIPERACILLIN AND TAZOBACTAM [Suspect]
     Active Substance: PIPERACILLIN SODIUM\TAZOBACTAM SODIUM
     Indication: INFECTION
     Dosage: 2.25 G, TID
     Route: 041
     Dates: start: 20170718, end: 20170726

REACTIONS (1)
  - Platelet count decreased [Unknown]

NARRATIVE: CASE EVENT DATE: 20170725
